FAERS Safety Report 18935279 (Version 3)
Quarter: 2021Q1

REPORT INFORMATION
  Report Type: Spontaneous
  Country: JP (occurrence: JP)
  Receive Date: 20210224
  Receipt Date: 20210312
  Transmission Date: 20210420
  Serious: Yes (Death, Other)
  Sender: FDA-Public Use
  Company Number: JP-JAZZ-2021-JP-003148

PATIENT
  Age: 22 Year
  Sex: Male
  Weight: 96.23 kg

DRUGS (1)
  1. DEFITELIO [Suspect]
     Active Substance: DEFIBROTIDE SODIUM
     Indication: VENOOCCLUSIVE LIVER DISEASE
     Dosage: 25 MILLIGRAM/KILOGRAM
     Route: 042
     Dates: start: 20210202, end: 20210218

REACTIONS (2)
  - Thrombophlebitis [Unknown]
  - Subarachnoid haemorrhage [Fatal]

NARRATIVE: CASE EVENT DATE: 202102
